FAERS Safety Report 5024356-4 (Version None)
Quarter: 2006Q2

REPORT INFORMATION
  Report Type: 
  Country: None (occurrence: None)
  Receive Date: 20060609
  Receipt Date: 20060609
  Transmission Date: 20061013
  Serious: Yes (Death)
  Sender: FDA-Public Use
  Company Number: None

PATIENT
  Age: 45 Year
  Sex: Female
  Weight: 73.5 kg

DRUGS (1)
  1. LOVENOX [Suspect]
     Indication: THROMBOSIS PROPHYLAXIS
     Dosage: 40 MG DAILY SQ
     Route: 058
     Dates: start: 20050525, end: 20060529

REACTIONS (4)
  - CONVULSION [None]
  - INTRACRANIAL HAEMATOMA [None]
  - RESPIRATORY ARREST [None]
  - SUBARACHNOID HAEMORRHAGE [None]
